FAERS Safety Report 10423522 (Version 1)
Quarter: 2014Q3

REPORT INFORMATION
  Report Type: Spontaneous
  Country: US (occurrence: US)
  Receive Date: 20140902
  Receipt Date: 20140902
  Transmission Date: 20150326
  Serious: Yes (Other)
  Sender: FDA-Public Use
  Company Number: US-PFIZER INC-2014242346

PATIENT
  Age: 67 Year
  Sex: Male
  Weight: 55 kg

DRUGS (1)
  1. SUTENT [Suspect]
     Active Substance: SUNITINIB MALATE
     Indication: RENAL CANCER
     Dosage: 37.5 MG, 3X/DAY

REACTIONS (4)
  - Cardiac failure [Unknown]
  - Intestinal perforation [Unknown]
  - Hypothyroidism [Unknown]
  - Platelet disorder [Unknown]

NARRATIVE: CASE EVENT DATE: 2014
